FAERS Safety Report 7021300-5 (Version None)
Quarter: 2010Q3

REPORT INFORMATION
  Report Type: 
  Country: None (occurrence: None)
  Receive Date: 20100929
  Receipt Date: 20100818
  Transmission Date: 20110219
  Serious: No
  Sender: FDA-Public Use
  Company Number: US-PFIZER INC-2010104652

PATIENT
  Sex: Male
  Weight: 61.2 kg

DRUGS (3)
  1. ZOLOFT [Suspect]
     Indication: DISTURBANCE IN ATTENTION
     Dosage: 50 MG, DAILY
     Dates: start: 20100101
  2. ZOLOFT [Suspect]
     Dosage: 100 MG, DAILY
     Dates: start: 20100101, end: 20100101
  3. ZOLOFT [Suspect]
     Dosage: 150 MG, DAILY
     Dates: start: 20090101

REACTIONS (5)
  - DIZZINESS [None]
  - IRRITABILITY [None]
  - PARAESTHESIA [None]
  - WEIGHT INCREASED [None]
  - WITHDRAWAL SYNDROME [None]
